FAERS Safety Report 25018664 (Version 1)
Quarter: 2025Q1

REPORT INFORMATION
  Report Type: Spontaneous
  Country: US (occurrence: US)
  Receive Date: 20250227
  Receipt Date: 20250227
  Transmission Date: 20250409
  Serious: No
  Sender: AVADEL CNS PHARMACEUTICALS, LLC
  Company Number: US-AVADEL CNS PHARMACEUTICALS, LLC-2024AVA02327

PATIENT
  Sex: Female

DRUGS (3)
  1. LUMRYZ [Suspect]
     Active Substance: SODIUM OXYBATE
     Indication: Narcolepsy
     Dosage: 4.5 G, ONCE NIGHTLY
     Dates: start: 20241124
  2. ARMODAFINIL [Concomitant]
     Active Substance: ARMODAFINIL
  3. MIRAPEX [Concomitant]
     Active Substance: PRAMIPEXOLE DIHYDROCHLORIDE

REACTIONS (10)
  - Respiration abnormal [Recovered/Resolved]
  - Snoring [Not Recovered/Not Resolved]
  - Gait disturbance [Recovered/Resolved]
  - Abnormal sleep-related event [Not Recovered/Not Resolved]
  - Feeling abnormal [Recovered/Resolved]
  - Insomnia [Not Recovered/Not Resolved]
  - Nocturia [Recovered/Resolved]
  - Disorientation [Recovered/Resolved]
  - Hyperhidrosis [Recovered/Resolved]
  - Intentional dose omission [Not Recovered/Not Resolved]

NARRATIVE: CASE EVENT DATE: 20240101
